FAERS Safety Report 9719676 (Version 1)
Quarter: 2013Q4

REPORT INFORMATION
  Report Type: Report from Study
  Country: DE (occurrence: DE)
  Receive Date: 20131128
  Receipt Date: 20131128
  Transmission Date: 20140711
  Serious: Yes (Hospitalization)
  Sender: FDA-Public Use
  Company Number: DE-AMGEN-DEUCT2013082388

PATIENT
  Age: 57 Year
  Sex: Male

DRUGS (5)
  1. PANITUMUMAB [Suspect]
     Indication: COLORECTAL CANCER METASTATIC
     Dosage: 6 MG/KG, UNK
     Route: 042
     Dates: start: 20131002
  2. 5-FU                               /00098801/ [Concomitant]
     Indication: COLORECTAL CANCER METASTATIC
     Dosage: 3000 MG/M2, UNK
     Route: 042
     Dates: start: 20131002
  3. LEUCOVORIN                         /00566701/ [Concomitant]
     Indication: COLORECTAL CANCER METASTATIC
     Dosage: 200 MG/M2, UNK
     Route: 042
     Dates: start: 20131002
  4. OXALIPLATIN [Concomitant]
     Indication: COLORECTAL CANCER METASTATIC
     Dosage: 85 MG/M2, UNK
     Route: 042
     Dates: start: 20131002
  5. IRINOTECAN [Concomitant]
     Indication: COLORECTAL CANCER METASTATIC
     Dosage: 150 MG/M2, UNK
     Route: 042
     Dates: start: 20131002

REACTIONS (1)
  - Vascular occlusion [Recovered/Resolved]
